FAERS Safety Report 17329448 (Version 1)
Quarter: 2020Q1

REPORT INFORMATION
  Report Type: Spontaneous
  Country: US (occurrence: US)
  Receive Date: 20200127
  Receipt Date: 20200127
  Transmission Date: 20200409
  Serious: Yes (Disabling)
  Sender: FDA-Public Use
  Company Number: None

PATIENT
  Age: 38 Year
  Sex: Female
  Weight: 124.65 kg

DRUGS (7)
  1. OMEPRAZOLE. [Concomitant]
     Active Substance: OMEPRAZOLE
  2. MULTIVITAMIN [Concomitant]
     Active Substance: VITAMINS
  3. CPAP [Concomitant]
     Active Substance: DEVICE
  4. DULOXETINE. [Suspect]
     Active Substance: DULOXETINE
     Indication: ANXIETY
     Dosage: ?          QUANTITY:1 CAPSULE(S);?
     Route: 048
     Dates: start: 20150601, end: 20200121
  5. DULOXETINE. [Suspect]
     Active Substance: DULOXETINE
     Indication: DEPRESSION
     Dosage: ?          QUANTITY:1 CAPSULE(S);?
     Route: 048
     Dates: start: 20150601, end: 20200121
  6. ELINEST [Concomitant]
     Active Substance: ETHINYL ESTRADIOL\NORGESTREL
  7. CLARITIN [Concomitant]
     Active Substance: LORATADINE

REACTIONS (3)
  - Nausea [None]
  - Diarrhoea [None]
  - Withdrawal syndrome [None]

NARRATIVE: CASE EVENT DATE: 20200122
